FAERS Safety Report 22364753 (Version 2)
Quarter: 2023Q2

REPORT INFORMATION
  Report Type: Spontaneous
  Country: BG (occurrence: BG)
  Receive Date: 20230525
  Receipt Date: 20230530
  Transmission Date: 20230721
  Serious: Yes (Other)
  Sender: FDA-Public Use
  Company Number: BG-ORGANON-O2304BGR002233

PATIENT
  Age: 59 Year
  Sex: Male

DRUGS (5)
  1. ENALAPRIL [Suspect]
     Active Substance: ENALAPRIL
     Indication: Ischaemic stroke
     Dosage: 10MG ONCE IN THE MORNING
     Route: 048
     Dates: start: 2008
  2. PIRACETAM [Concomitant]
     Active Substance: PIRACETAM
     Indication: Ischaemic stroke
     Dosage: THREE TIMES A DAY.
     Route: 065
  3. VINPOCETINE [Concomitant]
     Active Substance: VINPOCETINE
     Indication: Ischaemic stroke
     Dosage: 10 MG TWICE A DAY
     Route: 065
  4. ASPIRIN [Concomitant]
     Active Substance: ASPIRIN
     Indication: Ischaemic stroke
     Dosage: 100MG ONCE IN THE EVENING
     Route: 065
  5. FLUPENTIXOL\MELITRACEN [Concomitant]
     Active Substance: FLUPENTIXOL\MELITRACEN
     Indication: Ischaemic stroke
     Dosage: 0.5MG/10MG ONCE IN THE MORNING
     Route: 065

REACTIONS (3)
  - Basal cell carcinoma [Recovered/Resolved]
  - Disease progression [Recovered/Resolved]
  - Dysplastic naevus [Recovered/Resolved]

NARRATIVE: CASE EVENT DATE: 20100101
